FAERS Safety Report 25418623 (Version 2)
Quarter: 2025Q2

REPORT INFORMATION
  Report Type: Spontaneous
  Country: US (occurrence: US)
  Receive Date: 20250610
  Receipt Date: 20250617
  Transmission Date: 20250716
  Serious: Yes (Hospitalization, Other)
  Sender: SANDOZ
  Company Number: US-SANDOZ-SDZ2025US039479

PATIENT
  Age: 65 Year
  Sex: Male
  Weight: 64.5 kg

DRUGS (7)
  1. FLUOROURACIL [Suspect]
     Active Substance: FLUOROURACIL
     Indication: Cardiomyopathy
     Dosage: 4300MG Q14D
     Route: 042
     Dates: start: 20250527, end: 20250529
  2. IRINOTECAN [Suspect]
     Active Substance: IRINOTECAN
     Indication: Cardiomyopathy
     Dosage: 280MG Q14D
     Route: 042
     Dates: start: 20250527
  3. LEUCOVORIN [Suspect]
     Active Substance: LEUCOVORIN\LEUCOVORIN CALCIUM
     Indication: Cardiomyopathy
     Dosage: 700MG Q14D
     Route: 042
     Dates: start: 20250527
  4. OXALIPLATIN [Suspect]
     Active Substance: OXALIPLATIN
     Indication: Cardiomyopathy
     Dosage: 150 MG Q14D
     Route: 042
     Dates: start: 20250527
  5. ATORVASTATIN [Concomitant]
     Active Substance: ATORVASTATIN
     Indication: Hyperlipidaemia
     Route: 048
     Dates: start: 2005
  6. MAGNESIUM [Concomitant]
     Active Substance: MAGNESIUM
     Indication: Supplementation therapy
     Route: 048
     Dates: start: 202502
  7. RAMIPRIL [Concomitant]
     Active Substance: RAMIPRIL
     Indication: Hypertension
     Route: 048
     Dates: start: 2005

REACTIONS (5)
  - Cardiomyopathy [Recovering/Resolving]
  - Gastrointestinal haemorrhage [Recovered/Resolved]
  - Hypotension [Recovered/Resolved]
  - Atrial fibrillation [Recovered/Resolved]
  - Acute kidney injury [Recovered/Resolved]

NARRATIVE: CASE EVENT DATE: 20250530
